FAERS Safety Report 20688189 (Version 1)
Quarter: 2022Q2

REPORT INFORMATION
  Report Type: Spontaneous
  Country: US (occurrence: US)
  Receive Date: 20220408
  Receipt Date: 20220408
  Transmission Date: 20220721
  Serious: Yes (Hospitalization)
  Sender: FDA-Public Use
  Company Number: ENDG21-04594

PATIENT
  Sex: Male

DRUGS (2)
  1. HYDROXYUREA [Suspect]
     Active Substance: HYDROXYUREA
     Indication: Polycythaemia vera
     Dosage: UNK UNKNOWN, UNKNOWN
     Route: 065
     Dates: start: 2021, end: 2021
  2. HYDROXYUREA [Suspect]
     Active Substance: HYDROXYUREA
     Dosage: UNK UNKNOWN, UNKNOWN (RE-STARTED)
     Route: 065
     Dates: start: 20210713, end: 20210714

REACTIONS (4)
  - Pyrexia [Unknown]
  - Chest pain [Unknown]
  - Cough [Unknown]
  - Off label use [Recovered/Resolved]

NARRATIVE: CASE EVENT DATE: 20210101
